FAERS Safety Report 5727306-8 (Version None)
Quarter: 2008Q2

REPORT INFORMATION
  Report Type: 
  Country: None (occurrence: None)
  Receive Date: 20080430
  Receipt Date: 20080312
  Transmission Date: 20081010
  Serious: Yes (Death)
  Sender: FDA-Public Use
  Company Number: DIAT-4

PATIENT
  Age: 72 Year
  Sex: Male

DRUGS (2)
  1. DAUNORUBICIN HCL [Suspect]
     Indication: CHEMOTHERAPY
     Dosage: 50 MG/M2 IV
     Route: 042
     Dates: start: 20071222, end: 20071226
  2. CLOFARABINE [Suspect]
     Indication: CHEMOTHERAPY
     Dosage: 20 MG/M2 QD IV
     Route: 042
     Dates: start: 20071222, end: 20071226

REACTIONS (3)
  - ACUTE MYELOID LEUKAEMIA [None]
  - DISEASE PROGRESSION [None]
  - PNEUMONIA [None]
